FAERS Safety Report 9982285 (Version 1)
Quarter: 2014Q1

REPORT INFORMATION
  Report Type: Report from Study
  Country: US (occurrence: US)
  Receive Date: 20140307
  Receipt Date: 20140307
  Transmission Date: 20141002
  Serious: No
  Sender: FDA-Public Use
  Company Number: US-ABBVIE-13P-163-1179054-00

PATIENT
  Age: 63 Year
  Sex: Female

DRUGS (16)
  1. HUMIRA [Suspect]
     Indication: ANKYLOSING SPONDYLITIS
     Dates: start: 201307
  2. RECLAST [Suspect]
     Indication: OSTEOPOROSIS
     Dates: start: 201311
  3. RECLAST [Suspect]
     Indication: SPONDYLITIS
  4. PHENYTOIN [Concomitant]
     Indication: CONVULSION
  5. LEVOTHYROXINE [Concomitant]
     Indication: HYPOTHYROIDISM
  6. SINGULAIR [Concomitant]
     Indication: ASTHMA
  7. SINGULAIR [Concomitant]
     Indication: SEASONAL ALLERGY
  8. ZYRTEC [Concomitant]
     Indication: HYPERSENSITIVITY
  9. ZYRTEC [Concomitant]
     Indication: SEASONAL ALLERGY
  10. ESCITALOPRAM [Concomitant]
     Indication: DEPRESSION
  11. ATORVASTATIN [Concomitant]
     Indication: CARDIOVASCULAR EVENT PROPHYLAXIS
  12. ROPINIROLE [Concomitant]
     Indication: RESTLESS LEGS SYNDROME
  13. ALEVE [Concomitant]
     Indication: PRODUCT USED FOR UNKNOWN INDICATION
  14. CALCIUM [Concomitant]
     Indication: PRODUCT USED FOR UNKNOWN INDICATION
  15. VIT D [Concomitant]
     Indication: PRODUCT USED FOR UNKNOWN INDICATION
  16. COENZYME Q10 [Concomitant]
     Indication: PRODUCT USED FOR UNKNOWN INDICATION

REACTIONS (4)
  - Device malfunction [Unknown]
  - Colitis microscopic [Recovering/Resolving]
  - Incorrect dose administered [Unknown]
  - Injection site vesicles [Unknown]
